FAERS Safety Report 25361382 (Version 2)
Quarter: 2025Q2

REPORT INFORMATION
  Report Type: Spontaneous
  Country: US (occurrence: US)
  Receive Date: 20250527
  Receipt Date: 20250610
  Transmission Date: 20250717
  Serious: No
  Sender: SYNDAX
  Company Number: US-SYNDAX PHARMACEUTICALS, INC.-2025US000446

PATIENT
  Sex: Male
  Weight: 98.866 kg

DRUGS (1)
  1. REVUFORJ [Suspect]
     Active Substance: REVUMENIB CITRATE
     Indication: Acute myeloid leukaemia
     Dosage: 160 MILLIGRAM, BID
     Route: 048
     Dates: start: 20250428

REACTIONS (3)
  - General physical condition abnormal [Unknown]
  - Full blood count decreased [Unknown]
  - Platelet count decreased [Unknown]
